FAERS Safety Report 21213290 (Version 1)
Quarter: 2022Q3

REPORT INFORMATION
  Report Type: Spontaneous
  Country: US (occurrence: None)
  Receive Date: 20220814
  Receipt Date: 20220814
  Transmission Date: 20221026
  Serious: Yes (Death)
  Sender: FDA-Public Use
  Company Number: None

PATIENT
  Age: 84 Year
  Sex: Male

DRUGS (6)
  1. REPATHA [Suspect]
     Active Substance: EVOLOCUMAB
     Indication: Arteriosclerosis
     Dosage: 140 MG Q 14 DAYS SUBCUTANEOUSLY ??TREATMENT STATE DATE: 22-APR-2022
     Route: 058
     Dates: end: 20220107
  2. ASPIRIN [Concomitant]
     Active Substance: ASPIRIN
  3. COMBIVENTRESPIMAT INHALER [Concomitant]
  4. LIALBA [Concomitant]
  5. TOPROL XL [Concomitant]
     Active Substance: METOPROLOL SUCCINATE
  6. NITROSTAT [Concomitant]
     Active Substance: NITROGLYCERIN

REACTIONS (1)
  - Death [None]

NARRATIVE: CASE EVENT DATE: 20220107
